FAERS Safety Report 9286208 (Version 1)
Quarter: 2013Q2

REPORT INFORMATION
  Report Type: Spontaneous
  Country: US (occurrence: US)
  Receive Date: 20130513
  Receipt Date: 20130513
  Transmission Date: 20140414
  Serious: Yes (Other)
  Sender: FDA-Public Use
  Company Number: US-GLAXOSMITHKLINE-A1022674A

PATIENT
  Age: 63 Year
  Sex: Female

DRUGS (3)
  1. PROMACTA [Suspect]
     Indication: IDIOPATHIC THROMBOCYTOPENIC PURPURA
     Dosage: 50MG PER DAY
     Route: 048
     Dates: start: 201106
  2. LISINOPRIL + HYDROCHLOROTHIAZIDE [Concomitant]
  3. TOPROL [Concomitant]
     Dosage: 100MG PER DAY
     Route: 048

REACTIONS (1)
  - Breast cancer [Unknown]
